FAERS Safety Report 6880476-0 (Version None)
Quarter: 2010Q3

REPORT INFORMATION
  Report Type: 
  Country: None (occurrence: None)
  Receive Date: 20100727
  Receipt Date: 20100716
  Transmission Date: 20110219
  Serious: Yes (Hospitalization)
  Sender: FDA-Public Use
  Company Number: A0870838A

PATIENT
  Age: 58 Year
  Sex: Male

DRUGS (7)
  1. AVANDIA [Suspect]
     Dates: start: 19900101
  2. HUMALOG [Concomitant]
  3. ASPIRIN [Concomitant]
  4. ZANTAC [Concomitant]
  5. LIPITOR [Concomitant]
  6. ALTACE [Concomitant]
  7. TOPROL-XL [Concomitant]

REACTIONS (4)
  - CARDIAC OPERATION [None]
  - DIALYSIS [None]
  - MYOCARDIAL INFARCTION [None]
  - RENAL FAILURE [None]
